FAERS Safety Report 12159209 (Version 2)
Quarter: 2016Q1

REPORT INFORMATION
  Report Type: Spontaneous
  Country: US (occurrence: US)
  Receive Date: 20160308
  Receipt Date: 20160310
  Transmission Date: 20160526
  Serious: Yes (Other)
  Sender: FDA-Public Use
  Company Number: US-MEDTRONIC-1048781

PATIENT
  Sex: Female

DRUGS (2)
  1. COMPOUNDED BACLOFEN (200 MCG/ML) [Suspect]
     Active Substance: BACLOFEN
     Indication: SPINAL PAIN
     Route: 037
  2. HYDROMORPHONE HCL [Suspect]
     Active Substance: HYDROMORPHONE HYDROCHLORIDE
     Route: 037

REACTIONS (2)
  - Skin disorder [Unknown]
  - Implant site necrosis [Unknown]
